FAERS Safety Report 11300146 (Version 2)
Quarter: 2015Q3

REPORT INFORMATION
  Report Type: Spontaneous
  Country: US (occurrence: US)
  Receive Date: 20150722
  Receipt Date: 20150819
  Transmission Date: 20151125
  Serious: No
  Sender: FDA-Public Use
  Company Number: US-ELI_LILLY_AND_COMPANY-US201305003424

PATIENT
  Age: 13 Year
  Sex: Female

DRUGS (6)
  1. HUMATROPE [Suspect]
     Active Substance: SOMATROPIN
     Dosage: 3.6 MG, QD
     Route: 058
     Dates: start: 20130514
  2. BUPROPION. [Concomitant]
     Active Substance: BUPROPION
  3. HUMATROPE [Suspect]
     Active Substance: SOMATROPIN
     Indication: GROWTH HORMONE DEFICIENCY
     Dosage: 3.6 MG, QD
     Route: 058
     Dates: start: 20110927, end: 20130426
  4. ALLEGRA [Concomitant]
     Active Substance: FEXOFENADINE HYDROCHLORIDE
     Indication: HYPERSENSITIVITY
  5. INTUNIV [Concomitant]
     Active Substance: GUANFACINE HYDROCHLORIDE
     Indication: ATTENTION DEFICIT/HYPERACTIVITY DISORDER
  6. FLONASE [Concomitant]
     Active Substance: FLUTICASONE PROPIONATE
     Indication: HYPERSENSITIVITY

REACTIONS (5)
  - Pyrexia [Recovered/Resolved]
  - Tendonitis [Recovered/Resolved]
  - Periarthritis [Recovered/Resolved]
  - Pain in extremity [Recovered/Resolved]
  - Peripheral swelling [Recovered/Resolved]

NARRATIVE: CASE EVENT DATE: 20130424
